FAERS Safety Report 10220121 (Version 2)
Quarter: 2014Q2

REPORT INFORMATION
  Report Type: Spontaneous
  Country: US (occurrence: US)
  Receive Date: 20140605
  Receipt Date: 20140605
  Transmission Date: 20141212
  Serious: No
  Sender: FDA-Public Use
  Company Number: US-GILEAD-2014-0102914

PATIENT
  Age: 38 Year
  Sex: Male
  Weight: 119.73 kg

DRUGS (2)
  1. STRIBILD [Suspect]
     Indication: HIV INFECTION
     Dosage: 1 DF, UNK
     Route: 048
     Dates: start: 20130310
  2. EFFEXOR [Interacting]
     Indication: DEPRESSION
     Dosage: 75 MG, UNK
     Route: 048
     Dates: start: 20120102

REACTIONS (2)
  - Sunburn [Recovered/Resolved]
  - Potentiating drug interaction [Recovered/Resolved]
